FAERS Safety Report 25410203 (Version 1)
Quarter: 2025Q2

REPORT INFORMATION
  Report Type: Report from Study
  Country: DE (occurrence: DE)
  Receive Date: 20250608
  Receipt Date: 20250608
  Transmission Date: 20250717
  Serious: Yes (Hospitalization)
  Sender: ROCHE
  Company Number: DE-ML39632-2577051-1

PATIENT
  Age: 53 Year
  Sex: Male
  Weight: 89 kg

DRUGS (9)
  1. OCREVUS [Suspect]
     Active Substance: OCRELIZUMAB
     Indication: Relapsing multiple sclerosis
     Route: 042
     Dates: start: 20181002, end: 20181016
  2. OCREVUS [Suspect]
     Active Substance: OCRELIZUMAB
     Route: 042
     Dates: start: 20190409, end: 20241008
  3. PFIZER-BIONTECH COVID-19 VACCINE [Concomitant]
     Active Substance: TOZINAMERAN
     Indication: Prophylaxis
     Route: 030
     Dates: start: 202203, end: 202203
  4. PFIZER-BIONTECH COVID-19 VACCINE [Concomitant]
     Active Substance: TOZINAMERAN
     Route: 030
     Dates: start: 202202, end: 202202
  5. DULOXETINE [Concomitant]
     Active Substance: DULOXETINE
     Indication: Mood swings
     Route: 048
     Dates: start: 202308
  6. DULOXETINE [Concomitant]
     Active Substance: DULOXETINE
     Indication: Multiple sclerosis
  7. ENOXAPARIN SODIUM [Concomitant]
     Active Substance: ENOXAPARIN SODIUM
     Indication: Thrombosis prophylaxis
     Route: 058
     Dates: start: 20210720, end: 20210725
  8. PANTOPRAZOLE [Concomitant]
     Active Substance: PANTOPRAZOLE
     Indication: Prophylaxis
     Route: 048
     Dates: start: 20210720, end: 20210725
  9. METHYLPREDNISOLONE [Concomitant]
     Active Substance: METHYLPREDNISOLONE
     Indication: Multiple sclerosis
     Route: 042
     Dates: start: 20210720, end: 20210725

REACTIONS (2)
  - Arthralgia [Not Recovered/Not Resolved]
  - Pain in extremity [Not Recovered/Not Resolved]

NARRATIVE: CASE EVENT DATE: 20241201
